FAERS Safety Report 16019154 (Version 2)
Quarter: 2019Q1

REPORT INFORMATION
  Report Type: Spontaneous
  Country: NL (occurrence: NL)
  Receive Date: 20190228
  Receipt Date: 20190313
  Transmission Date: 20190418
  Serious: Yes (Other)
  Sender: FDA-Public Use
  Company Number: NL-TEVA-2019-NL-1016644

PATIENT
  Age: 69 Year
  Sex: Female
  Weight: 86 kg

DRUGS (10)
  1. OPTIMACBD CBD 4% [Concomitant]
     Dosage: 2DD (Z.N.) DRUPPELS
  2. TASECTAN 500 MG [Concomitant]
     Dosage: 1DD (Z.N.) CAPSULE
  3. OXAZEPAM 10 MG [Concomitant]
     Dosage: 2DD TABLET
  4. LOSARTAN FILMOMHULDE TABLET, 50 MG (MILLIGRAM) [Suspect]
     Active Substance: LOSARTAN
     Indication: HYPERTENSION
     Dosage: 50 MILLIGRAM DAILY; 1DD1T
     Dates: start: 201901, end: 201901
  5. MULTIVITAMINE VITAAL (FIT FOR ME) [Concomitant]
     Dosage: 1 DOSAGE FORMS DAILY; 1DD TABLET
  6. PARACETAMOL 500 MG [Concomitant]
     Active Substance: ACETAMINOPHEN
     Dosage: 1DD (Z.N.) TABLET
  7. NEURASTON [Concomitant]
     Dosage: 2DD 20-50 DRUPPELS (Z.N.)
  8. IBEROGAST [Concomitant]
     Active Substance: HERBALS
     Dosage: 1DD (Z.N.) DRUPPELS
  9. AMLODIPINE [Concomitant]
     Active Substance: AMLODIPINE BESYLATE
     Dosage: 1 DOSAGE FORMS DAILY; 1DD TABLET
  10. MAGNESIUM CITRAAT LIVSANE [Concomitant]
     Dosage: 1 DOSAGE FORMS DAILY; 1DD TABLET

REACTIONS (1)
  - Renal failure [Recovered/Resolved]
